FAERS Safety Report 6330839-7 (Version None)
Quarter: 2009Q3

REPORT INFORMATION
  Report Type: 
  Country: None (occurrence: None)
  Receive Date: 20090827
  Receipt Date: 20090819
  Transmission Date: 20100115
  Serious: Yes (Hospitalization)
  Sender: FDA-Public Use
  Company Number: ES-B.I. PHARMACEUTICALS,INC./RIDGEFIELD-2009-DE-05533GD

PATIENT
  Age: 40 Year
  Sex: Male

DRUGS (12)
  1. NEVIRAPINE [Suspect]
     Indication: HIV INFECTION
  2. DIDANOSINE [Suspect]
     Indication: HIV INFECTION
  3. ZIDOVUDINE [Suspect]
     Indication: HIV INFECTION
  4. STAVUDINE [Suspect]
     Indication: HIV INFECTION
  5. LAMIVUDINE [Suspect]
     Indication: HIV INFECTION
  6. EFAVIRENZ [Suspect]
     Indication: HIV INFECTION
  7. LOPINAVIR [Suspect]
     Indication: HIV INFECTION
  8. RITONAVIR [Suspect]
     Indication: HIV INFECTION
  9. NELFINAVIR [Suspect]
     Indication: HIV INFECTION
  10. TENOFOVIR [Suspect]
     Indication: HIV INFECTION
  11. EMTRICITABINE [Suspect]
     Indication: HIV INFECTION
  12. FOSAMPRENAVIR [Suspect]
     Indication: HIV INFECTION

REACTIONS (3)
  - PORTAL HYPERTENSIVE GASTROPATHY [None]
  - PULMONARY HYPERTENSION [None]
  - VARICES OESOPHAGEAL [None]
